FAERS Safety Report 19730179 (Version 1)
Quarter: 2021Q3

REPORT INFORMATION
  Report Type: Report from Study
  Country: IT (occurrence: IT)
  Receive Date: 20210820
  Receipt Date: 20210820
  Transmission Date: 20211014
  Serious: Yes (Hospitalization)
  Sender: FDA-Public Use
  Company Number: IT-TEVA-2021-IT-1943026

PATIENT
  Age: 74 Year
  Sex: Female

DRUGS (8)
  1. IRINTO [Suspect]
     Active Substance: IRINOTECAN HYDROCHLORIDE
     Indication: CHEMOTHERAPY
     Dosage: 1 DOSAGE FORMS
     Route: 042
     Dates: start: 20201229, end: 20201229
  2. LIXIANA 60 MG FILM?COATED TABLETS [Concomitant]
     Active Substance: EDOXABAN TOSYLATE
     Route: 048
  3. TRANSTEC 35 MICROGRAMMI /H CEROTTO TRANSDERMICO [Concomitant]
     Route: 062
  4. FLUOROURACILE TEVA 5 G/100 ML SOLUZIONE PER INFUSIONE [Suspect]
     Active Substance: FLUOROURACIL
     Indication: CHEMOTHERAPY
     Dosage: 1 DOSAGE FORMS
     Route: 042
  5. SOLDESAM [Concomitant]
     Active Substance: DEXAMETHASONE
     Route: 030
  6. PLASIL [Concomitant]
     Active Substance: METOCLOPRAMIDE HYDROCHLORIDE
     Route: 030
  7. RAMIPRIL DOC GENERICI 5 MG COMPRESSE [Concomitant]
     Route: 048
  8. SETOFILM 8 MG FILM ORODISPERSIBILI [Concomitant]
     Route: 048

REACTIONS (4)
  - Diarrhoea [Recovered/Resolved]
  - Abdominal pain [Recovered/Resolved]
  - Vomiting [Recovered/Resolved]
  - Asthenia [Recovered/Resolved]

NARRATIVE: CASE EVENT DATE: 20210102
